FAERS Safety Report 10753110 (Version 1)
Quarter: 2015Q1

REPORT INFORMATION
  Report Type: Spontaneous
  Country: US (occurrence: US)
  Receive Date: 20150130
  Receipt Date: 20150130
  Transmission Date: 20150721
  Serious: No
  Sender: FDA-Public Use
  Company Number: US-PFIZER INC-2015029132

PATIENT
  Sex: Male

DRUGS (2)
  1. CENTRUM [Concomitant]
     Active Substance: VITAMINS
     Dosage: UNK
  2. LIPITOR [Suspect]
     Active Substance: ATORVASTATIN CALCIUM
     Dosage: UNK

REACTIONS (6)
  - Nervous system disorder [Unknown]
  - Anger [Unknown]
  - Drug intolerance [Unknown]
  - Tinnitus [Unknown]
  - Toxicity to various agents [Unknown]
  - Memory impairment [Unknown]
